FAERS Safety Report 11022726 (Version 2)
Quarter: 2016Q2

REPORT INFORMATION
  Report Type: Spontaneous
  Country: US (occurrence: US)
  Receive Date: 20150413
  Receipt Date: 20160609
  Transmission Date: 20160815
  Serious: Yes (Other)
  Sender: FDA-Public Use
  Company Number: US-ASTELLAS-2015US007464

PATIENT
  Age: 69 Year
  Sex: Male

DRUGS (9)
  1. TACROLIMUS. [Suspect]
     Active Substance: TACROLIMUS
     Route: 065
     Dates: start: 20150325
  2. TACROLIMUS. [Suspect]
     Active Substance: TACROLIMUS
     Dosage: 4MG IN AM AND 5MG EVERY PM
     Route: 065
     Dates: start: 20150301
  3. TACROLIMUS. [Suspect]
     Active Substance: TACROLIMUS
     Indication: RENAL TRANSPLANT
     Route: 065
     Dates: start: 20150222
  4. TACROLIMUS. [Suspect]
     Active Substance: TACROLIMUS
     Route: 065
     Dates: start: 20150305
  5. TACROLIMUS. [Suspect]
     Active Substance: TACROLIMUS
     Indication: IMMUNOSUPPRESSION
     Route: 065
     Dates: start: 20150221
  6. TACROLIMUS. [Suspect]
     Active Substance: TACROLIMUS
     Dosage: 1MG IN THE AM AND 2MG IN THE PM
     Route: 065
     Dates: start: 20150309
  7. TACROLIMUS. [Suspect]
     Active Substance: TACROLIMUS
     Route: 065
     Dates: start: 20150320
  8. TACROLIMUS. [Suspect]
     Active Substance: TACROLIMUS
     Dosage: 1MG IN THE AM AND 2MG IN THE PM
     Route: 065
     Dates: start: 20150331
  9. TACROLIMUS. [Suspect]
     Active Substance: TACROLIMUS
     Route: 065
     Dates: start: 20150403

REACTIONS (2)
  - Drug level above therapeutic [Recovered/Resolved]
  - Hyperkalaemia [Recovered/Resolved]

NARRATIVE: CASE EVENT DATE: 20150226
